FAERS Safety Report 4330713-1 (Version None)
Quarter: 2004Q2

REPORT INFORMATION
  Report Type: 
  Country: None (occurrence: None)
  Receive Date: 20040402
  Receipt Date: 20040303
  Transmission Date: 20050107
  Serious: Yes (Death, Hospitalization)
  Sender: FDA-Public Use
  Company Number: FR-BRISTOL-MYERS SQUIBB COMPANY-12528634

PATIENT
  Age: 42 Year
  Sex: Male

DRUGS (7)
  1. METFORMIN HCL [Suspect]
  2. INSULIN [Concomitant]
  3. CLARITHROMYCIN [Concomitant]
  4. DOMPERIDONE [Concomitant]
  5. IBUPROFEN [Concomitant]
  6. BUFLOMEDIL [Concomitant]
  7. TIAPROFENIC ACID [Concomitant]

REACTIONS (12)
  - ACUTE RESPIRATORY DISTRESS SYNDROME [None]
  - BRADYCARDIA [None]
  - COMPLETED SUICIDE [None]
  - DEHYDRATION [None]
  - GASTRIC ULCER [None]
  - HAEMODIALYSIS [None]
  - HYPOTHERMIA [None]
  - INTENTIONAL OVERDOSE [None]
  - LACTIC ACIDOSIS [None]
  - OESOPHAGITIS [None]
  - RENAL FAILURE [None]
  - SHOCK [None]
